FAERS Safety Report 23355684 (Version 2)
Quarter: 2024Q1

REPORT INFORMATION
  Report Type: Spontaneous
  Country: US (occurrence: US)
  Receive Date: 20240102
  Receipt Date: 20240104
  Transmission Date: 20240410
  Serious: Yes (Other)
  Sender: FDA-Public Use
  Company Number: US-NOVOPROD-1155177

PATIENT
  Sex: Female

DRUGS (2)
  1. SEMAGLUTIDE [Suspect]
     Active Substance: SEMAGLUTIDE
     Indication: Product used for unknown indication
     Dosage: 10 IU, QW
     Route: 030
     Dates: start: 20221104
  2. SEMAGLUTIDE [Suspect]
     Active Substance: SEMAGLUTIDE
     Dosage: 120 IU, QW
     Route: 030

REACTIONS (5)
  - Rectal haemorrhage [Unknown]
  - Mucous stools [Unknown]
  - Abdominal pain [Unknown]
  - Counterfeit product administered [Unknown]
  - Off label use [Unknown]

NARRATIVE: CASE EVENT DATE: 20221104
